FAERS Safety Report 8539714-0 (Version None)
Quarter: 2012Q3

REPORT INFORMATION
  Report Type: 
  Country: None (occurrence: None)
  Receive Date: 20120726
  Receipt Date: 20110801
  Transmission Date: 20120928
  Serious: No
  Sender: FDA-Public Use
  Company Number: US-ASTRAZENECA-2009SE32062

PATIENT
  Sex: Female

DRUGS (9)
  1. SEROQUEL [Suspect]
     Indication: PSYCHOTIC DISORDER
     Route: 048
     Dates: start: 20090101
  2. NAMENDA [Concomitant]
  3. FAMOTIDINE [Concomitant]
  4. METOPROLOL TARTRATE [Concomitant]
  5. LAVOXYL [Concomitant]
  6. HYDRALAZINE HCL [Concomitant]
  7. ALENDRONATE SODIUM [Concomitant]
  8. BENAZEPRIL HYDROCHLORIDE [Concomitant]
  9. SIMVASTATIN [Concomitant]

REACTIONS (2)
  - HYPERSOMNIA [None]
  - SYNCOPE [None]
